FAERS Safety Report 6710240-4 (Version None)
Quarter: 2010Q2

REPORT INFORMATION
  Report Type: 
  Country: None (occurrence: None)
  Receive Date: 20100430
  Receipt Date: 20100416
  Transmission Date: 20101027
  Serious: Yes (Other)
  Sender: FDA-Public Use
  Company Number: 010770

PATIENT
  Age: 71 Year
  Sex: Female

DRUGS (3)
  1. VIMPAT [Suspect]
     Indication: PARTIAL SEIZURES
     Dosage: (MAXIMUM DOSE: 350 MG: INCREASE OF 100 MG/WEEK.)
     Dates: start: 20081110, end: 20091208
  2. LEVETIRACETAM [Concomitant]
  3. PHENYTOIN [Concomitant]

REACTIONS (1)
  - URTICARIA [None]
